FAERS Safety Report 4434542-X (Version None)
Quarter: 2004Q3

REPORT INFORMATION
  Report Type: 
  Country: None (occurrence: None)
  Receive Date: 20040727
  Receipt Date: 20030908
  Transmission Date: 20050211
  Serious: Yes (Other)
  Sender: FDA-Public Use
  Company Number: C2003-2330.01

PATIENT
  Age: 48 Year
  Sex: Male
  Weight: 76.2043 kg

DRUGS (4)
  1. CLOMIPRAMINE HCL [Suspect]
     Indication: OBSESSIVE-COMPULSIVE DISORDER
     Dosage: 25 MG TID, ORAL
     Route: 048
     Dates: start: 20030701
  2. CLONAZEPAM [Concomitant]
  3. OMEPRAZOLE [Concomitant]
  4. RISPERIDONE [Concomitant]

REACTIONS (6)
  - ABDOMINAL DISTENSION [None]
  - ACNE [None]
  - ALOPECIA [None]
  - LETHARGY [None]
  - SKIN DISCOLOURATION [None]
  - WEIGHT INCREASED [None]
